FAERS Safety Report 9526555 (Version 2)
Quarter: 2013Q4

REPORT INFORMATION
  Report Type: Spontaneous
  Country: US (occurrence: US)
  Receive Date: 20130916
  Receipt Date: 20131025
  Transmission Date: 20140711
  Serious: No
  Sender: FDA-Public Use
  Company Number: US-PFIZER INC-2013263850

PATIENT
  Age: 58 Year
  Sex: Male
  Weight: 68.03 kg

DRUGS (3)
  1. SUTENT [Suspect]
     Indication: RENAL CELL CARCINOMA
     Dosage: 50 MG, UNK
     Route: 048
     Dates: start: 20130128, end: 20131001
  2. LEVOTHYROXINE [Concomitant]
     Indication: THYROID DISORDER
     Dosage: 75 UG, 1X/DAY
  3. TEMAZEPAM [Concomitant]
     Indication: SLEEP DISORDER
     Dosage: 50 MG, AS NEEDED

REACTIONS (8)
  - Disease progression [Unknown]
  - Renal cell carcinoma [Unknown]
  - Genital rash [Not Recovered/Not Resolved]
  - Tendon disorder [Not Recovered/Not Resolved]
  - Drug intolerance [Unknown]
  - Oral pain [Unknown]
  - Decreased appetite [Unknown]
  - Palmar-plantar erythrodysaesthesia syndrome [Unknown]
